FAERS Safety Report 6604741-7 (Version None)
Quarter: 2010Q1

REPORT INFORMATION
  Report Type: 
  Country: None (occurrence: None)
  Receive Date: 20100226
  Receipt Date: 20091120
  Transmission Date: 20100710
  Serious: No
  Sender: FDA-Public Use
  Company Number: US-BRISTOL-MYERS SQUIBB COMPANY-14875942

PATIENT
  Age: 50 Year
  Sex: Female

DRUGS (1)
  1. ONGLYZA [Suspect]

REACTIONS (1)
  - HEADACHE [None]
